FAERS Safety Report 5000887-8 (Version None)
Quarter: 2006Q2

REPORT INFORMATION
  Report Type: 
  Country: None (occurrence: None)
  Receive Date: 20060512
  Receipt Date: 20050819
  Transmission Date: 20061013
  Serious: No
  Sender: FDA-Public Use
  Company Number: US-GLAXOSMITHKLINE-A0570936A

PATIENT
  Age: 67 Year
  Sex: Female

DRUGS (2)
  1. RELAFEN [Suspect]
     Indication: OSTEOARTHRITIS
     Dosage: 1000MG PER DAY
     Route: 048
  2. NO CONCURRENT MEDICATION [Concomitant]

REACTIONS (1)
  - MIGRAINE WITH AURA [None]
